FAERS Safety Report 7710051-7 (Version None)
Quarter: 2011Q3

REPORT INFORMATION
  Report Type: 
  Country: None (occurrence: None)
  Receive Date: 20110825
  Receipt Date: 20110816
  Transmission Date: 20111222
  Serious: Yes (Hospitalization, Other)
  Sender: FDA-Public Use
  Company Number: PHHY2011BR74388

PATIENT
  Sex: Male

DRUGS (2)
  1. DIOVAN [Suspect]
     Indication: HYPERTENSION
     Dosage: 160 MG, QD
     Route: 048
     Dates: end: 20100101
  2. GALVUS MET [Suspect]
     Dosage: 2 DF, QD
     Route: 048

REACTIONS (4)
  - INGUINAL HERNIA [None]
  - CHOLELITHIASIS [None]
  - BLOOD PRESSURE INCREASED [None]
  - ELECTROLYTE IMBALANCE [None]
